FAERS Safety Report 9386980 (Version 1)
Quarter: 2013Q3

REPORT INFORMATION
  Report Type: Spontaneous
  Country: US (occurrence: None)
  Receive Date: 20130703
  Receipt Date: 20130703
  Transmission Date: 20140515
  Serious: Yes (Other)
  Sender: FDA-Public Use
  Company Number: None

PATIENT
  Age: 37 Year
  Sex: Female
  Weight: 57 kg

DRUGS (3)
  1. SOY EXTRACT [Suspect]
     Dosage: PEA, DAILY, TOPICAL
     Route: 061
     Dates: start: 20120601
  2. ROC RETINOL [Suspect]
     Dosage: SMALLER THAN PEA, DAILY, TOPICAL
     Route: 061
     Dates: start: 20120601
  3. ROC RETINOL CORREXION DEEP WRINTKLE NIGHT CREAML [Suspect]
     Indication: SKIN WRINKLING
     Dosage: PEARL SIZE, NIGHTLY, TOPICAL
     Route: 061
     Dates: start: 20120601

REACTIONS (13)
  - Erythema [None]
  - Skin burning sensation [None]
  - Skin exfoliation [None]
  - Swelling face [None]
  - Eye swelling [None]
  - Purulence [None]
  - Pain [None]
  - Discomfort [None]
  - Dermatitis [None]
  - Staphylococcal infection [None]
  - Tenderness [None]
  - Hypophagia [None]
  - Swelling [None]
